FAERS Safety Report 7586821-5 (Version None)
Quarter: 2011Q3

REPORT INFORMATION
  Report Type: 
  Country: None (occurrence: None)
  Receive Date: 20110701
  Receipt Date: 20110622
  Transmission Date: 20111222
  Serious: Yes (Hospitalization)
  Sender: FDA-Public Use
  Company Number: JP-CEPHALON-2011001082

PATIENT
  Sex: Female
  Weight: 40 kg

DRUGS (13)
  1. ITRACONAZOLE [Concomitant]
  2. BIAPENEM [Concomitant]
     Dates: start: 20101227, end: 20110228
  3. FAMOTIDINE [Concomitant]
  4. GRANISETRON HCL [Concomitant]
     Dates: start: 20101216, end: 20110204
  5. METHYLPREDNISOLONE SODIUM SUCCINATE [Concomitant]
     Dates: start: 20110113, end: 20110205
  6. BENDAMUSTINE HCL [Suspect]
     Indication: B-CELL LYMPHOMA
     Route: 042
     Dates: start: 20101216, end: 20101217
  7. BENDAMUSTINE HCL [Suspect]
     Route: 042
     Dates: start: 20110203, end: 20110204
  8. CEFEPIME [Concomitant]
  9. ALFACALCIDOL [Concomitant]
  10. BENDAMUSTINE HCL [Suspect]
     Route: 042
     Dates: start: 20110113, end: 20110114
  11. LENOGRASTIM [Concomitant]
     Dates: start: 20101222, end: 20110324
  12. RITUXIMAB [Concomitant]
     Dates: start: 20101215, end: 20110202
  13. CIPROFLOXACIN HYDROCHLORIDE [Concomitant]
     Dates: start: 20110304, end: 20110314

REACTIONS (6)
  - FEBRILE NEUTROPENIA [None]
  - NAUSEA [None]
  - NEUTROPHIL COUNT DECREASED [None]
  - OEDEMA [None]
  - ANAEMIA [None]
  - SUBCUTANEOUS ABSCESS [None]
